FAERS Safety Report 9960488 (Version 1)
Quarter: 2014Q1

REPORT INFORMATION
  Report Type: Report from Study
  Country: US (occurrence: US)
  Receive Date: 20140305
  Receipt Date: 20140305
  Transmission Date: 20141002
  Serious: No
  Sender: FDA-Public Use
  Company Number: US-ABBVIE-13P-163-1110738-00

PATIENT
  Age: 63 Year
  Sex: Male

DRUGS (7)
  1. HUMIRA [Suspect]
     Indication: CROHN^S DISEASE
     Dates: start: 20130529, end: 20130529
  2. HUMIRA [Suspect]
     Dates: start: 20130612, end: 20130612
  3. CRESTOR [Concomitant]
     Indication: BLOOD CHOLESTEROL INCREASED
  4. TRICOR [Concomitant]
     Indication: BLOOD CHOLESTEROL INCREASED
     Dosage: 145MG DAILY
  5. ENTOCORT [Concomitant]
     Indication: CROHN^S DISEASE
     Dosage: 3MG DAILY
  6. LEXAPRO [Concomitant]
     Indication: DEPRESSION
  7. VITAMIN B 12 LICHTENSTEIN [Concomitant]
     Indication: CROHN^S DISEASE

REACTIONS (2)
  - Abdominal pain upper [Recovered/Resolved]
  - Bowel movement irregularity [Not Recovered/Not Resolved]
